FAERS Safety Report 10478435 (Version 1)
Quarter: 2014Q3

REPORT INFORMATION
  Report Type: Spontaneous
  Country: US (occurrence: None)
  Receive Date: 20140925
  Receipt Date: 20140925
  Transmission Date: 20150326
  Serious: Yes (Disabling)
  Sender: FDA-Public Use
  Company Number: None

PATIENT
  Age: 34 Year
  Sex: Female
  Weight: 83.92 kg

DRUGS (1)
  1. FLONASE [Suspect]
     Active Substance: FLUTICASONE PROPIONATE
     Indication: UPPER RESPIRATORY TRACT INFECTION
     Dosage: NASAL INHALATION
     Route: 055

REACTIONS (6)
  - No therapeutic response [None]
  - Muscle spasms [None]
  - Dyspnoea [None]
  - Bone pain [None]
  - Vertigo [None]
  - Pain [None]

NARRATIVE: CASE EVENT DATE: 20140924
